FAERS Safety Report 7154697-6 (Version None)
Quarter: 2010Q4

REPORT INFORMATION
  Report Type: 
  Country: None (occurrence: None)
  Receive Date: 20101214
  Receipt Date: 20091106
  Transmission Date: 20110411
  Serious: Yes (Other)
  Sender: FDA-Public Use
  Company Number: US-AMGEN-QUU373330

PATIENT

DRUGS (8)
  1. ENBREL [Suspect]
     Indication: PSORIASIS
     Dosage: 25 MG, 2 TIMES/WK
     Dates: start: 20040701, end: 20080701
  2. VALACYCLOVIR HYDROCHLORIDE [Concomitant]
     Dosage: UNK UNK, PRN
  3. FLUCINOLONE ACETONIDE [Concomitant]
     Dosage: UNK UNK, UNK
  4. LISINOPRIL AND HYDROCHLOROTHIAZIDE [Concomitant]
     Dosage: UNK UNK, UNK
  5. PIROXICAM [Concomitant]
     Dosage: UNK UNK, UNK
  6. LEVOTHYROXINE SODIUM [Concomitant]
     Dosage: UNK UNK, UNK
  7. ANTIOXIDANT [Concomitant]
     Dosage: UNK UNK, UNK
  8. GLUCOSAMINE [Concomitant]
     Dosage: UNK UNK, UNK

REACTIONS (1)
  - NON-HODGKIN'S LYMPHOMA [None]
